FAERS Safety Report 4858709-1 (Version None)
Quarter: 2005Q4

REPORT INFORMATION
  Report Type: 
  Country: None (occurrence: None)
  Receive Date: 20051219
  Receipt Date: 20051020
  Transmission Date: 20060501
  Serious: No
  Sender: FDA-Public Use
  Company Number: US-GLAXOSMITHKLINE-A0578940A

PATIENT
  Age: 37 Year
  Sex: Female

DRUGS (1)
  1. NICODERM CQ [Suspect]
     Dates: start: 20051014, end: 20051019

REACTIONS (4)
  - BACK PAIN [None]
  - CHEST PAIN [None]
  - NECK PAIN [None]
  - PRURITUS [None]
